FAERS Safety Report 6356711-4 (Version None)
Quarter: 2009Q3

REPORT INFORMATION
  Report Type: 
  Country: None (occurrence: None)
  Receive Date: 20090915
  Receipt Date: 20090904
  Transmission Date: 20100115
  Serious: Yes (Hospitalization, Other)
  Sender: FDA-Public Use
  Company Number: US-MERCK-0901USA02263

PATIENT
  Age: 67 Year
  Sex: Female

DRUGS (3)
  1. FOSAMAX [Suspect]
     Indication: OSTEOPOROSIS
     Route: 048
     Dates: start: 19950101, end: 20031201
  2. ZOMETA [Suspect]
     Indication: RESORPTION BONE INCREASED
     Route: 042
     Dates: start: 20040322, end: 20051102
  3. ZOMETA [Suspect]
     Indication: OSTEOPOROSIS
     Route: 042
     Dates: start: 20040322, end: 20051102

REACTIONS (24)
  - ANXIETY [None]
  - ARTHROPATHY [None]
  - BONE DISORDER [None]
  - BREAST CANCER [None]
  - CONTRAST MEDIA ALLERGY [None]
  - CYSTITIS INTERSTITIAL [None]
  - DENTAL CARIES [None]
  - DENTAL PLAQUE [None]
  - DRUG HYPERSENSITIVITY [None]
  - GALLBLADDER DISORDER [None]
  - GINGIVAL BLEEDING [None]
  - GINGIVITIS [None]
  - HEPATIC CYST [None]
  - IMPAIRED HEALING [None]
  - INFLAMMATION [None]
  - ORAL PAIN [None]
  - OSTEONECROSIS [None]
  - OSTEORADIONECROSIS [None]
  - POSTMENOPAUSAL HAEMORRHAGE [None]
  - RESORPTION BONE INCREASED [None]
  - STOMATITIS [None]
  - TOOTH DISORDER [None]
  - URINARY TRACT INFECTION [None]
  - VIRAL INFECTION [None]
